FAERS Safety Report 5621979-6 (Version None)
Quarter: 2008Q1

REPORT INFORMATION
  Report Type: 
  Country: None (occurrence: None)
  Receive Date: 20080211
  Receipt Date: 20080204
  Transmission Date: 20080703
  Serious: Yes (Congenital Anomaly)
  Sender: FDA-Public Use
  Company Number: B0507132A

PATIENT
  Sex: Female

DRUGS (4)
  1. SUMATRIPTAN SUCCINATE [Suspect]
     Indication: MIGRAINE
     Dates: start: 20040901
  2. RELPAX [Suspect]
     Indication: MIGRAINE
     Dates: start: 20040921
  3. ZOMIG [Suspect]
     Indication: MIGRAINE
     Dates: start: 20040901
  4. NITROFURANTOIN [Concomitant]
     Indication: URINARY TRACT INFECTION
     Dosage: 50MG FOUR TIMES PER DAY
     Dates: start: 20041002, end: 20041011

REACTIONS (2)
  - DRUG EXPOSURE DURING PREGNANCY [None]
  - PETIT MAL EPILEPSY [None]
